FAERS Safety Report 12464081 (Version 1)
Quarter: 2016Q2

REPORT INFORMATION
  Report Type: Spontaneous
  Country: US (occurrence: None)
  Receive Date: 20160613
  Receipt Date: 20160613
  Transmission Date: 20160815
  Serious: No
  Sender: FDA-Public Use
  Company Number: None

PATIENT
  Sex: Male

DRUGS (1)
  1. SUBOXONE [Suspect]
     Active Substance: BUPRENORPHINE HYDROCHLORIDE\NALOXONE HYDROCHLORIDE
     Indication: DRUG DEPENDENCE
     Dosage: 8/2MG 1 FILM ONCE DAILY SL
     Route: 060

REACTIONS (6)
  - Lethargy [None]
  - Hypersensitivity [None]
  - Pruritus [None]
  - Lip swelling [None]
  - Swollen tongue [None]
  - Pain [None]

NARRATIVE: CASE EVENT DATE: 201506
